FAERS Safety Report 18349911 (Version 2)
Quarter: 2020Q4

REPORT INFORMATION
  Report Type: Spontaneous
  Country: US (occurrence: US)
  Receive Date: 20201006
  Receipt Date: 20201103
  Transmission Date: 20210114
  Serious: Yes (Hospitalization)
  Sender: FDA-Public Use
  Company Number: US-PFIZER INC-2020381986

PATIENT
  Age: 46 Year
  Sex: Female
  Weight: 78.01 kg

DRUGS (1)
  1. IBRANCE [Suspect]
     Active Substance: PALBOCICLIB
     Indication: BREAST CANCER FEMALE
     Dosage: 125 MG DAILY FOR 21 DAYS
     Route: 048
     Dates: start: 20200703

REACTIONS (2)
  - Device related infection [Unknown]
  - Fatigue [Unknown]
